FAERS Safety Report 5590589-1 (Version None)
Quarter: 2008Q1

REPORT INFORMATION
  Report Type: 
  Country: None (occurrence: None)
  Receive Date: 20080114
  Receipt Date: 20080104
  Transmission Date: 20080703
  Serious: Yes (Other)
  Sender: FDA-Public Use
  Company Number: BR-GILEAD-2007-0014703

PATIENT
  Sex: Male
  Weight: 3.8 kg

DRUGS (2)
  1. VIREAD [Suspect]
     Indication: HIV INFECTION
     Route: 048
     Dates: start: 20071127, end: 20071202
  2. ZIDOVUDINE [Concomitant]
     Indication: HIV INFECTION
     Dates: start: 20071127

REACTIONS (1)
  - HAEMOGLOBIN DECREASED [None]
